FAERS Safety Report 15784996 (Version 1)
Quarter: 2019Q1

REPORT INFORMATION
  Report Type: Spontaneous
  Country: US (occurrence: US)
  Receive Date: 20190103
  Receipt Date: 20190103
  Transmission Date: 20190417
  Serious: No
  Sender: FDA-Public Use
  Company Number: US-BAYER-2019-000067

PATIENT
  Age: 28 Year
  Sex: Female
  Weight: 104 kg

DRUGS (3)
  1. MIRALAX [Suspect]
     Active Substance: POLYETHYLENE GLYCOL 3350
     Indication: IRRITABLE BOWEL SYNDROME
     Dosage: 1 DF, QD
     Route: 048
     Dates: start: 2004
  2. MIRALAX [Suspect]
     Active Substance: POLYETHYLENE GLYCOL 3350
     Indication: MEGACOLON
     Dosage: 1 DF, QD
     Route: 048
     Dates: start: 2004
  3. MIRALAX [Suspect]
     Active Substance: POLYETHYLENE GLYCOL 3350
     Indication: MEGACOLON
     Dosage: 1 DF, QD
     Route: 048
     Dates: start: 201812, end: 20181230

REACTIONS (4)
  - Incorrect product administration duration [Unknown]
  - Dysgeusia [Unknown]
  - Product use in unapproved indication [None]
  - Drug ineffective [Unknown]

NARRATIVE: CASE EVENT DATE: 2004
